FAERS Safety Report 15343374 (Version 4)
Quarter: 2018Q3

REPORT INFORMATION
  Report Type: Spontaneous
  Country: NO (occurrence: NO)
  Receive Date: 20180903
  Receipt Date: 20180927
  Transmission Date: 20181010
  Serious: Yes (Hospitalization, Other)
  Sender: FDA-Public Use
  Company Number: NO-ROCHE-2178681

PATIENT
  Sex: Female

DRUGS (3)
  1. TECENTRIQ [Suspect]
     Active Substance: ATEZOLIZUMAB
     Indication: CERVIX CARCINOMA
     Route: 065
     Dates: start: 20180815, end: 20180815
  2. KLEXANE [Concomitant]
     Active Substance: ENOXAPARIN
     Indication: PULMONARY EMBOLISM
  3. MAREVAN [Concomitant]
     Active Substance: WARFARIN SODIUM

REACTIONS (4)
  - Pyrexia [Recovered/Resolved]
  - Pancytopenia [Recovered/Resolved]
  - Off label use [Unknown]
  - Product use in unapproved indication [Unknown]
